FAERS Safety Report 7423964-0 (Version None)
Quarter: 2011Q2

REPORT INFORMATION
  Report Type: 
  Country: None (occurrence: None)
  Receive Date: 20110419
  Receipt Date: 20110412
  Transmission Date: 20111010
  Serious: Yes (Death, Congenital Anomaly)
  Sender: FDA-Public Use
  Company Number: B0704379A

PATIENT
  Sex: Female

DRUGS (2)
  1. ZOVIRAX [Concomitant]
     Route: 064
     Dates: start: 20101028, end: 20101118
  2. VALTREX [Suspect]
     Dosage: 500MG PER DAY
     Route: 064
     Dates: start: 20070401, end: 20101027

REACTIONS (2)
  - CYTOGENETIC ABNORMALITY [None]
  - DRUG EXPOSURE DURING PREGNANCY [None]
